FAERS Safety Report 10583666 (Version 2)
Quarter: 2014Q4

REPORT INFORMATION
  Report Type: Spontaneous
  Country: US (occurrence: US)
  Receive Date: 20141114
  Receipt Date: 20141121
  Transmission Date: 20150529
  Serious: Yes (Other)
  Sender: FDA-Public Use
  Company Number: US-JNJFOC-20141103166

PATIENT

DRUGS (5)
  1. TACROLIMUS. [Concomitant]
     Active Substance: TACROLIMUS
  2. SIMEPREVIR [Suspect]
     Active Substance: SIMEPREVIR
     Indication: HEPATITIS C
     Route: 065
  3. RIBAVIRIN. [Suspect]
     Active Substance: RIBAVIRIN
     Indication: HEPATITIS C
  4. CYCLOSPORINE. [Concomitant]
     Active Substance: CYCLOSPORINE
  5. SOFOSBUVIR [Suspect]
     Active Substance: SOFOSBUVIR
     Indication: HEPATITIS C
     Route: 065

REACTIONS (8)
  - Hyperbilirubinaemia [Unknown]
  - Off label use [Recovered/Resolved]
  - Rash [Unknown]
  - Drug ineffective [Unknown]
  - Confusional state [Unknown]
  - Photosensitivity reaction [Unknown]
  - Fatigue [Unknown]
  - Liver disorder [Unknown]
